APPROVED DRUG PRODUCT: NEPHROSCAN
Active Ingredient: TECHNETIUM TC-99M SUCCIMER
Strength: N/A
Dosage Form/Route: POWDER;INTRAVENOUS
Application: N214993 | Product #001
Applicant: THERAGNOSTICS INC
Approved: Feb 18, 2022 | RLD: Yes | RS: Yes | Type: RX